FAERS Safety Report 18541881 (Version 1)
Quarter: 2020Q4

REPORT INFORMATION
  Report Type: Not Available
  Country: US (occurrence: None)
  Receive Date: 20201124
  Receipt Date: 20201124
  Transmission Date: 20210114
  Serious: Yes (Other)
  Sender: FDA-Public Use
  Company Number: US-AKORN-147905

PATIENT
  Age: 30 Year
  Sex: Female

DRUGS (1)
  1. MYORISAN [Suspect]
     Active Substance: ISOTRETINOIN

REACTIONS (2)
  - Dry skin [Unknown]
  - Aspartate aminotransferase increased [Recovered/Resolved]
